FAERS Safety Report 8589400-6 (Version None)
Quarter: 2012Q3

REPORT INFORMATION
  Report Type: 
  Country: None (occurrence: None)
  Receive Date: 20120813
  Receipt Date: 20100418
  Transmission Date: 20120928
  Serious: Yes (Other)
  Sender: FDA-Public Use
  Company Number: CO-PFIZER INC-2012191904

PATIENT
  Age: 71 Year
  Sex: Male

DRUGS (3)
  1. LOSARTAN [Concomitant]
     Dosage: 50 MG, 1X/DAY
  2. LOSARTAN [Concomitant]
     Dosage: 50 MG, 2X/DAY
  3. LIPITOR [Suspect]
     Indication: DYSLIPIDAEMIA
     Dosage: 10 MG, 1X/DAY

REACTIONS (5)
  - RENAL FAILURE ACUTE [None]
  - RENAL FAILURE CHRONIC [None]
  - HAEMATURIA [None]
  - PROTEINURIA [None]
  - LEUKOCYTURIA [None]
